FAERS Safety Report 5958099-7 (Version None)
Quarter: 2008Q4

REPORT INFORMATION
  Report Type: 
  Country: None (occurrence: None)
  Receive Date: 20081119
  Receipt Date: 20081117
  Transmission Date: 20090506
  Serious: Yes (Other)
  Sender: FDA-Public Use
  Company Number: B0546538A

PATIENT
  Age: 72 Year
  Sex: Female

DRUGS (1)
  1. MODACIN [Suspect]
     Indication: DRUG USE FOR UNKNOWN INDICATION
     Dosage: 1G TWICE PER DAY
     Route: 042

REACTIONS (1)
  - BONE MARROW FAILURE [None]
